FAERS Safety Report 6072384-2 (Version None)
Quarter: 2009Q1

REPORT INFORMATION
  Report Type: 
  Country: None (occurrence: None)
  Receive Date: 20090210
  Receipt Date: 20090203
  Transmission Date: 20090719
  Serious: Yes (Hospitalization)
  Sender: FDA-Public Use
  Company Number: US-GENENTECH-271795

PATIENT
  Sex: Male
  Weight: 84.354 kg

DRUGS (3)
  1. AVASTIN [Suspect]
     Indication: HEPATIC NEOPLASM MALIGNANT
     Dosage: 748 MG, Q2W
     Route: 042
     Dates: start: 20081104
  2. TARCEVA [Suspect]
     Indication: HEPATIC NEOPLASM MALIGNANT
  3. ABRAXANE [Concomitant]
     Indication: DRUG USE FOR UNKNOWN INDICATION

REACTIONS (2)
  - MELAENA [None]
  - MENTAL STATUS CHANGES [None]
